FAERS Safety Report 7811209-9 (Version None)
Quarter: 2011Q4

REPORT INFORMATION
  Report Type: 
  Country: None (occurrence: None)
  Receive Date: 20111013
  Receipt Date: 20111005
  Transmission Date: 20120403
  Serious: Yes (Death, Life-Threatening, Hospitalization, Other)
  Sender: FDA-Public Use
  Company Number: SA-GENZYME-THYM-1002825

PATIENT
  Sex: Male
  Weight: 67 kg

DRUGS (12)
  1. TRANEXAMIC ACID [Concomitant]
     Indication: HAEMORRHAGE
     Dosage: 1 G, PRN
     Route: 048
     Dates: start: 20110528, end: 20110618
  2. GABAPENTIN [Concomitant]
     Indication: BLOOD GLUCOSE ABNORMAL
     Dosage: 100 MG, TID
     Route: 048
     Dates: start: 20110606, end: 20110618
  3. PREDNISOLONE [Concomitant]
     Indication: DISEASE PROGRESSION
     Dosage: 10 MG, QOD
     Route: 048
     Dates: start: 20110608, end: 20110618
  4. LORAZEPAM [Concomitant]
     Indication: PRODUCT USED FOR UNKNOWN INDICATION
     Dosage: 0.5 MG, PRN
     Route: 042
     Dates: start: 20110518, end: 20110618
  5. TYLENOL-500 [Concomitant]
     Indication: PYREXIA
     Dosage: UNK
     Route: 065
  6. BLOOD TRANSFUSION, AUXILIARY PRODUCTS [Concomitant]
     Indication: HAEMOGLOBIN DECREASED
     Route: 065
  7. THYMOGLOBULIN [Suspect]
     Indication: APLASTIC ANAEMIA
     Dosage: 300 MG, QD
     Route: 042
     Dates: start: 20090105, end: 20090110
  8. OMEPRAZOLE [Concomitant]
     Indication: UPPER GASTROINTESTINAL HAEMORRHAGE
     Dosage: 20 MG, BID
     Route: 048
     Dates: start: 20110525, end: 20110618
  9. ANTIBIOTICS [Concomitant]
     Indication: PYREXIA
  10. CORTICOSTEROIDS [Concomitant]
     Indication: PYREXIA
     Dosage: 20 MG, QOD
     Route: 048
  11. CYCLOSPORINE [Concomitant]
     Indication: APLASTIC ANAEMIA
     Dosage: 150 MG, BID
     Route: 048
     Dates: start: 20090105
  12. VORICONAZOLE [Concomitant]
     Indication: INFECTION
     Dosage: 200 MG, BID
     Route: 048
     Dates: start: 20110531, end: 20110611

REACTIONS (6)
  - SEPTIC SHOCK [None]
  - ACUTE RESPIRATORY DISTRESS SYNDROME [None]
  - DEEP VEIN THROMBOSIS [None]
  - ACUTE MYELOID LEUKAEMIA [None]
  - UPPER GASTROINTESTINAL HAEMORRHAGE [None]
  - LUNG INFECTION [None]
